FAERS Safety Report 18687490 (Version 2)
Quarter: 2021Q1

REPORT INFORMATION
  Report Type: Spontaneous
  Country: JP (occurrence: JP)
  Receive Date: 20201231
  Receipt Date: 20210205
  Transmission Date: 20210419
  Serious: Yes (Death)
  Sender: FDA-Public Use
  Company Number: JP-BAYER-2020-282692

PATIENT
  Age: 72 Year
  Sex: Female

DRUGS (1)
  1. STIVARGA [Suspect]
     Active Substance: REGORAFENIB
     Indication: COLORECTAL CANCER
     Dosage: DAILY DOSE 160 MG, CONTINUE FOR 3 WEEKS AND THEN STOP FOR 1 WEEK
     Dates: start: 20201204, end: 20201215

REACTIONS (5)
  - Platelet count decreased [None]
  - Disseminated intravascular coagulation [Fatal]
  - Pyrexia [None]
  - Decreased appetite [None]
  - Rash erythematous [None]

NARRATIVE: CASE EVENT DATE: 202012
